FAERS Safety Report 6660204-4 (Version None)
Quarter: 2010Q1

REPORT INFORMATION
  Report Type: 
  Country: None (occurrence: None)
  Receive Date: 20100331
  Receipt Date: 20100310
  Transmission Date: 20100710
  Serious: No
  Sender: FDA-Public Use
  Company Number: 2009BI026383

PATIENT
  Age: 62 Year
  Sex: Female

DRUGS (1)
  1. TYSABRI [Suspect]
     Indication: MULTIPLE SCLEROSIS
     Route: 042
     Dates: start: 20090519

REACTIONS (18)
  - ARTHRITIS [None]
  - ARTHROPOD BITE [None]
  - BACTERIAL INFECTION [None]
  - BRONCHITIS [None]
  - DIARRHOEA [None]
  - FATIGUE [None]
  - HYPOTHYROIDISM [None]
  - MALAISE [None]
  - MICTURITION URGENCY [None]
  - OEDEMA PERIPHERAL [None]
  - PAIN IN EXTREMITY [None]
  - PYREXIA [None]
  - RESPIRATORY TRACT INFECTION [None]
  - SEPSIS [None]
  - URINARY TRACT INFECTION [None]
  - UVEITIS [None]
  - VEIN DISORDER [None]
  - VOMITING [None]
